FAERS Safety Report 9415272 (Version 3)
Quarter: 2014Q2

REPORT INFORMATION
  Report Type: Spontaneous
  Country: GB (occurrence: GB)
  Receive Date: 20130723
  Receipt Date: 20140428
  Transmission Date: 20141212
  Serious: Yes (Death, Life-Threatening, Hospitalization, Other)
  Sender: FDA-Public Use
  Company Number: GB-JNJFOC-20130520069

PATIENT
  Age: 49 Year
  Sex: Female
  Weight: 68 kg

DRUGS (8)
  1. INTELENCE [Suspect]
     Indication: HIV INFECTION
     Route: 048
     Dates: start: 20130308, end: 20130515
  2. PREZISTA [Suspect]
     Indication: HIV INFECTION
     Route: 048
     Dates: start: 20110505, end: 20121002
  3. ACICLOVIR [Suspect]
     Indication: PROPHYLAXIS
     Route: 048
     Dates: start: 201008, end: 20130515
  4. ISENTRESS [Suspect]
     Indication: HIV INFECTION
     Route: 048
     Dates: start: 20130308, end: 20130515
  5. LAMIVUDINE [Suspect]
     Indication: HIV INFECTION
     Route: 048
     Dates: start: 20130308, end: 20130515
  6. ADCAL-D3 [Concomitant]
     Indication: PRODUCT USED FOR UNKNOWN INDICATION
     Route: 048
  7. FERROUS SULPHATE [Concomitant]
     Indication: PRODUCT USED FOR UNKNOWN INDICATION
     Route: 048
  8. FOLIC ACID [Concomitant]
     Indication: PRODUCT USED FOR UNKNOWN INDICATION
     Route: 048

REACTIONS (5)
  - Multi-organ failure [Fatal]
  - Pancreatitis acute [Fatal]
  - Renal failure acute [Unknown]
  - Pneumonia [Unknown]
  - Wrong technique in drug usage process [Unknown]
